FAERS Safety Report 9382681 (Version 1)
Quarter: 2013Q3

REPORT INFORMATION
  Report Type: Spontaneous
  Country: JP (occurrence: JP)
  Receive Date: 20130703
  Receipt Date: 20130703
  Transmission Date: 20140515
  Serious: Yes (Other)
  Sender: FDA-Public Use
  Company Number: JP-VIIV HEALTHCARE LIMITED-B0899647A

PATIENT
  Sex: Male

DRUGS (2)
  1. EPZICOM [Suspect]
     Indication: HIV INFECTION
     Dosage: 1IUAX PER DAY
     Route: 048
     Dates: end: 20130527
  2. ISENTRESS [Concomitant]
     Indication: HIV INFECTION
     Dosage: 1IUAX TWICE PER DAY
     Dates: end: 20130527

REACTIONS (3)
  - Suicide attempt [Unknown]
  - Overdose [Unknown]
  - No adverse event [Unknown]
